FAERS Safety Report 13592101 (Version 1)
Quarter: 2017Q2

REPORT INFORMATION
  Report Type: Report from Study
  Country: US (occurrence: US)
  Receive Date: 20170530
  Receipt Date: 20170530
  Transmission Date: 20170830
  Serious: No
  Sender: FDA-Public Use
  Company Number: PHEH2017US015720

PATIENT
  Sex: Female

DRUGS (1)
  1. COSENTYX [Suspect]
     Active Substance: SECUKINUMAB
     Indication: PRODUCT USED FOR UNKNOWN INDICATION
     Dosage: 300 MG, QMO (TWO, 150 MG INJECTIONS)
     Route: 065
     Dates: start: 201701

REACTIONS (7)
  - Dyspnoea [Unknown]
  - Skin ulcer [Unknown]
  - Stomatitis [Unknown]
  - Hyperhidrosis [Unknown]
  - Exposure to toxic agent [Unknown]
  - Erythema [Unknown]
  - Diarrhoea [Unknown]
